FAERS Safety Report 9860507 (Version 2)
Quarter: 2021Q4

REPORT INFORMATION
  Report Type: Spontaneous
  Country: US (occurrence: US)
  Receive Date: 20140202
  Receipt Date: 20211201
  Transmission Date: 20220303
  Serious: Yes (Death, Other)
  Sender: FDA-Public Use
  Company Number: CHPA2014US001778

PATIENT
  Age: 57 Year
  Sex: Female

DRUGS (2)
  1. DEXTROMETHORPHAN HYDROBROMIDE [Suspect]
     Active Substance: DEXTROMETHORPHAN HYDROBROMIDE
     Indication: Product used for unknown indication
     Dosage: UNK
     Route: 048
  2. ACETAMINOPHEN\DEXTROMETHORPHAN\DOXYLAMINE\PSEUDOEPHEDRINE [Suspect]
     Active Substance: ACETAMINOPHEN\DEXTROMETHORPHAN\DOXYLAMINE\PSEUDOEPHEDRINE
     Indication: Product used for unknown indication
     Dosage: UNK
     Route: 048

REACTIONS (3)
  - Death [Fatal]
  - Cardio-respiratory arrest [Fatal]
  - Cardiac arrest [Fatal]
